FAERS Safety Report 17640498 (Version 1)
Quarter: 2020Q2

REPORT INFORMATION
  Report Type: Spontaneous
  Country: JP (occurrence: JP)
  Receive Date: 20200408
  Receipt Date: 20200408
  Transmission Date: 20200713
  Serious: Yes (Other)
  Sender: FDA-Public Use
  Company Number: JP-SUN PHARMACEUTICAL INDUSTRIES LTD-2020RR-243164

PATIENT
  Age: 34 Year
  Sex: Female

DRUGS (2)
  1. BOSENTAN. [Suspect]
     Active Substance: BOSENTAN
     Indication: SYSTEMIC SCLERODERMA
     Dosage: 250 MILLIGRAM, DAILY
     Route: 065
  2. PROSTAGLANDIN E1 [Suspect]
     Active Substance: ALPROSTADIL
     Indication: SYSTEMIC SCLERODERMA
     Dosage: 120 MILLIGRAM, DAILY
     Route: 065

REACTIONS (1)
  - Drug resistance [Unknown]
